FAERS Safety Report 8078982-9 (Version None)
Quarter: 2012Q1

REPORT INFORMATION
  Report Type: 
  Country: None (occurrence: None)
  Receive Date: 20120128
  Receipt Date: 20110621
  Transmission Date: 20120608
  Serious: No
  Sender: FDA-Public Use
  Company Number: US-ABBOTT-11P-163-0734169-00

PATIENT
  Sex: Female

DRUGS (12)
  1. HUMIRA [Suspect]
     Indication: RHEUMATOID ARTHRITIS
     Route: 058
  2. HUMIRA [Suspect]
     Route: 058
     Dates: start: 20110512
  3. UNKNOWN EYE DROPS [Concomitant]
     Indication: GLAUCOMA
  4. VITAMIN TAB [Concomitant]
     Indication: PRODUCT USED FOR UNKNOWN INDICATION
  5. PREDNISONE TAB [Concomitant]
     Indication: PRODUCT USED FOR UNKNOWN INDICATION
  6. EXFORGE [Concomitant]
     Indication: HYPERTENSION
  7. FOLIC ACID [Concomitant]
     Indication: PRODUCT USED FOR UNKNOWN INDICATION
  8. SYNTHROID [Concomitant]
     Indication: THYROID FUNCTION TEST ABNORMAL
     Dosage: LOW DOSE, DAILY
  9. PROTONICS [Concomitant]
     Indication: ABDOMINAL DISCOMFORT
  10. ICAPS [Concomitant]
     Indication: VISUAL IMPAIRMENT
  11. ALPHAGAN [Concomitant]
     Indication: GLAUCOMA
     Dosage: EYE GTTS, DAILY
  12. PREDNISONE TAB [Concomitant]
     Indication: UNEVALUABLE EVENT
     Dosage: EYE GTTS, BID

REACTIONS (2)
  - DRUG INEFFECTIVE [None]
  - INJECTION SITE PAIN [None]
